FAERS Safety Report 8589013-6 (Version None)
Quarter: 2012Q3

REPORT INFORMATION
  Report Type: 
  Country: None (occurrence: None)
  Receive Date: 20120813
  Receipt Date: 20120806
  Transmission Date: 20120928
  Serious: Yes (Other)
  Sender: FDA-Public Use
  Company Number: US-009507513-1208USA003554

PATIENT

DRUGS (2)
  1. PEG-INTRON [Suspect]
     Indication: HEPATITIS C
     Dosage: UNK
     Dates: start: 20120606
  2. REBETOL [Suspect]
     Indication: HEPATITIS C
     Dosage: UNK
     Dates: start: 20120606

REACTIONS (13)
  - GENERALISED ANXIETY DISORDER [None]
  - RECTAL HAEMORRHAGE [None]
  - RASH [None]
  - PAIN [None]
  - BLOOD POTASSIUM DECREASED [None]
  - HAEMORRHOIDS [None]
  - HYPOGLYCAEMIA [None]
  - DECREASED APPETITE [None]
  - ASTHENIA [None]
  - NAUSEA [None]
  - ABDOMINAL PAIN UPPER [None]
  - ANAEMIA [None]
  - BLOOD MAGNESIUM DECREASED [None]
